FAERS Safety Report 11538325 (Version 4)
Quarter: 2015Q4

REPORT INFORMATION
  Report Type: Report from Study
  Country: CA (occurrence: CA)
  Receive Date: 20150922
  Receipt Date: 20151022
  Transmission Date: 20160304
  Serious: Yes (Hospitalization, Other)
  Sender: FDA-Public Use
  Company Number: CA-GILEAD-2015-0166593

PATIENT
  Age: 75 Year
  Sex: Male

DRUGS (2)
  1. IDELALISIB [Suspect]
     Active Substance: IDELALISIB
     Indication: NON-HODGKIN^S LYMPHOMA UNSPECIFIED HISTOLOGY INDOLENT
     Dosage: 150 MG, BID
     Route: 048
     Dates: start: 20150710, end: 20150827
  2. IDELALISIB [Suspect]
     Active Substance: IDELALISIB
     Dosage: 100 MG, BID
     Route: 048
     Dates: start: 20150827, end: 20150911

REACTIONS (12)
  - Haemoglobin decreased [Unknown]
  - Computerised tomogram abnormal [Unknown]
  - Malaise [Unknown]
  - Asthenia [Unknown]
  - Procedural pain [Unknown]
  - Febrile neutropenia [Not Recovered/Not Resolved]
  - Blood test abnormal [Unknown]
  - Rash macular [Unknown]
  - Lymphocyte count increased [Unknown]
  - Lower respiratory tract infection bacterial [Unknown]
  - Pain in extremity [Unknown]
  - Neutropenia [Unknown]

NARRATIVE: CASE EVENT DATE: 201507
